FAERS Safety Report 23239188 (Version 1)
Quarter: 2023Q4

REPORT INFORMATION
  Report Type: Spontaneous
  Country: US (occurrence: US)
  Receive Date: 20231129
  Receipt Date: 20231129
  Transmission Date: 20240110
  Serious: No
  Sender: FDA-Public Use
  Company Number: US-AMGEN-USASP2023210657

PATIENT
  Sex: Male

DRUGS (1)
  1. CINACALCET HYDROCHLORIDE [Suspect]
     Active Substance: CINACALCET HYDROCHLORIDE
     Indication: Hypercalcaemia
     Dosage: UNK UNK, 30-90 MILLIGRAM QD
     Route: 048

REACTIONS (3)
  - Blood 1,25-dihydroxycholecalciferol increased [Unknown]
  - Blood parathyroid hormone decreased [Unknown]
  - Off label use [Unknown]
